FAERS Safety Report 7233610-7 (Version None)
Quarter: 2011Q1

REPORT INFORMATION
  Report Type: 
  Country: None (occurrence: None)
  Receive Date: 20110119
  Receipt Date: 20110113
  Transmission Date: 20110831
  Serious: Yes (Death, Hospitalization, Other)
  Sender: FDA-Public Use
  Company Number: BR-BAYER-201016948LA

PATIENT
  Sex: Male
  Weight: 49 kg

DRUGS (16)
  1. NEXAVAR [Suspect]
     Dosage: 400 MG, QD (CYCLE 3-6)
     Route: 048
     Dates: start: 20100429, end: 20100716
  2. NEXAVAR [Suspect]
     Indication: HEPATIC NEOPLASM MALIGNANT
     Dosage: 400 MG, BID
     Route: 048
     Dates: start: 20100317, end: 20100428
  3. PLACEBO (12917) [Suspect]
     Dosage: 50 MG, QD (CYCLE 2-3)
     Route: 048
     Dates: start: 20100507, end: 20100716
  4. PLACEBO (12917) [Suspect]
     Dosage: 50 MG, QD
     Route: 048
     Dates: start: 20100730, end: 20100824
  5. PLACEBO (12917) [Suspect]
     Dosage: 100 MG, QD (CYCLE 1-2)
     Route: 048
     Dates: start: 20100417, end: 20100506
  6. AMPLICTIL [Concomitant]
     Indication: SEDATION
     Dosage: 92 MG, UNK
     Dates: start: 20100826, end: 20100827
  7. SERUM PHYSIOLOGICAL [Concomitant]
     Indication: FLUID REPLACEMENT
     Dosage: 1000 ML, UNK
     Dates: start: 20100716, end: 20100717
  8. HENETIX [Concomitant]
     Indication: COMPUTERISED TOMOGRAM
     Dosage: 1.7 ML/KG, UNK
     Dates: start: 20100225, end: 20100722
  9. NEXAVAR [Suspect]
     Dosage: 400 MG, QD
     Dates: start: 20100819, end: 20100824
  10. PANTOPRAZOLE [Concomitant]
     Indication: PROPHYLAXIS
     Dosage: 40 MG, UNK
     Dates: start: 20100826, end: 20100826
  11. NEXAVAR [Suspect]
     Dosage: 400 MG, QOD (CYCLE 9-10)
     Route: 048
     Dates: start: 20100730, end: 20100818
  12. MORPHINE [Concomitant]
     Indication: PAIN
     Dosage: 100 MG, QD
     Route: 042
     Dates: start: 20100826, end: 20100826
  13. AMPLICTIL [Concomitant]
     Indication: PSYCHOTIC DISORDER
     Dosage: 100 MG, QD
     Route: 042
     Dates: start: 20100826, end: 20100826
  14. PLACEBO (12917) [Suspect]
     Indication: HIP FRACTURE
     Dosage: 150 MG, QD (CYCLE 1 AND 5)
     Route: 048
     Dates: start: 20100317, end: 20100416
  15. SODIUM CHLORIDE [Concomitant]
     Indication: FLUID REPLACEMENT
     Dosage: 80 ML, UNK
     Dates: start: 20100825, end: 20100827
  16. SERUM GLUCOSAE [Concomitant]
     Indication: FLUID REPLACEMENT
     Dosage: 2000 ML, UNK
     Dates: start: 20100825, end: 20100827

REACTIONS (3)
  - CONVULSION [None]
  - DEEP VEIN THROMBOSIS [None]
  - HYPOTENSION [None]
